FAERS Safety Report 5080558-2 (Version None)
Quarter: 2006Q3

REPORT INFORMATION
  Report Type: 
  Country: None (occurrence: None)
  Receive Date: 20060815
  Receipt Date: 20060811
  Transmission Date: 20061208
  Serious: Yes (Other)
  Sender: FDA-Public Use
  Company Number: US-GLAXOSMITHKLINE-A0616278A

PATIENT
  Sex: Male

DRUGS (1)
  1. ECOTRIN ADULT LOW STRENGTH TABLETS [Suspect]
     Indication: DRUG USE FOR UNKNOWN INDICATION
     Dates: start: 20030101

REACTIONS (7)
  - EYE DISORDER [None]
  - FEELING ABNORMAL [None]
  - PHOTOPSIA [None]
  - RETINAL HAEMORRHAGE [None]
  - RETINAL TEAR [None]
  - STOMACH DISCOMFORT [None]
  - VITREOUS FLOATERS [None]
